FAERS Safety Report 13225157 (Version 2)
Quarter: 2017Q1

REPORT INFORMATION
  Report Type: Other
  Country: SE (occurrence: SE)
  Receive Date: 20170213
  Receipt Date: 20170215
  Transmission Date: 20170428
  Serious: Yes (Hospitalization, Other)
  Sender: FDA-Public Use
  Company Number: SE-TAKEDA-2017MPI001107

PATIENT
  Age: 65 Year
  Sex: Female

DRUGS (19)
  1. VELCADE [Suspect]
     Active Substance: BORTEZOMIB
     Indication: PLASMA CELL MYELOMA
     Dosage: 1.3 MG/M2, UNK
     Route: 042
     Dates: start: 20141128
  2. MELPHALAN [Suspect]
     Active Substance: MELPHALAN
     Indication: PLASMA CELL MYELOMA
     Dosage: 200 MG/M2, UNK
     Route: 065
     Dates: start: 20141201, end: 20141201
  3. SCHERIPROCT                        /01814801/ [Concomitant]
     Dosage: UNK
     Route: 065
  4. STESOLID [Concomitant]
     Active Substance: DIAZEPAM
     Dosage: UNK
     Route: 065
  5. COCILLANA-ETYFIN                   /00223001/ [Concomitant]
     Dosage: UNK
     Route: 065
  6. DEXAMETASON ABCUR [Concomitant]
     Dosage: UNK
     Route: 065
  7. BENDAMUSTINE HYDROCHLORIDE. [Suspect]
     Active Substance: BENDAMUSTINE HYDROCHLORIDE
     Indication: PLASMA CELL MYELOMA
     Dosage: 100 MG/M2, UNK
     Route: 065
     Dates: start: 20141130
  8. PAMIDRONATDINATRIUM HOSPIRA [Concomitant]
     Active Substance: PAMIDRONATE DISODIUM
     Dosage: UNK
     Route: 065
  9. PANODIL [Concomitant]
     Active Substance: ACETAMINOPHEN
     Dosage: UNK
     Route: 065
  10. METOPROLOL ORION [Concomitant]
     Active Substance: METOPROLOL
     Dosage: UNK
     Route: 065
  11. ONDANSETRON [Concomitant]
     Active Substance: ONDANSETRON
     Dosage: UNK
     Route: 065
  12. DEPOLAN                            /00036303/ [Concomitant]
     Dosage: UNK
     Route: 065
  13. ACICLOVIR [Concomitant]
     Active Substance: ACYCLOVIR
     Dosage: UNK
     Route: 065
  14. OMEPRAZOL BLUEFISH [Concomitant]
     Dosage: UNK
     Route: 065
  15. SULPHAMETHOXAZOLE [Concomitant]
     Active Substance: SULFAMETHOXAZOLE
     Dosage: UNK
     Route: 065
  16. CEDAX [Concomitant]
     Active Substance: CEFTIBUTEN DIHYDRATE
     Dosage: UNK
     Route: 065
  17. KALEORID [Concomitant]
     Active Substance: POTASSIUM CHLORIDE
     Dosage: UNK
     Route: 065
  18. CIPRALEX [Concomitant]
     Active Substance: ESCITALOPRAM OXALATE
     Dosage: UNK
     Route: 065
  19. AMILORIDE [Concomitant]
     Active Substance: AMILORIDE
     Dosage: UNK
     Route: 065

REACTIONS (1)
  - Agranulocytosis [Recovered/Resolved]

NARRATIVE: CASE EVENT DATE: 20141209
